FAERS Safety Report 7472201-X (Version None)
Quarter: 2011Q2

REPORT INFORMATION
  Report Type: 
  Country: None (occurrence: None)
  Receive Date: 20110511
  Receipt Date: 20110307
  Transmission Date: 20111010
  Serious: No
  Sender: FDA-Public Use
  Company Number: A0917177A

PATIENT
  Sex: Female

DRUGS (2)
  1. HERCEPTIN [Concomitant]
  2. TYKERB [Suspect]
     Indication: BREAST CANCER
     Dosage: 625MG PER DAY
     Route: 048

REACTIONS (1)
  - STOMATITIS [None]
